FAERS Safety Report 4399610-X (Version None)
Quarter: 2004Q3

REPORT INFORMATION
  Report Type: 
  Country: None (occurrence: None)
  Receive Date: 20040712
  Receipt Date: 20040623
  Transmission Date: 20050211
  Serious: Yes (Death)
  Sender: FDA-Public Use
  Company Number: F01200401434

PATIENT
  Age: 73 Year
  Sex: Male

DRUGS (1)
  1. FONDAPARINUX SODIUM [Suspect]
     Indication: SURGERY
     Dosage: 2.5 MG, SUBCUTANEOUS
     Route: 058
     Dates: start: 20040310

REACTIONS (1)
  - CARDIO-RESPIRATORY ARREST [None]
